FAERS Safety Report 24006506 (Version 1)
Quarter: 2024Q2

REPORT INFORMATION
  Report Type: Spontaneous
  Country: BR (occurrence: BR)
  Receive Date: 20240624
  Receipt Date: 20240624
  Transmission Date: 20240716
  Serious: Yes (Hospitalization)
  Sender: FDA-Public Use
  Company Number: BR-TAKEDA-2024TUS061230

PATIENT
  Sex: Female

DRUGS (6)
  1. MESALAMINE [Suspect]
     Active Substance: MESALAMINE
     Indication: Diverticulitis
     Dosage: 2400 MILLIGRAM, QD
     Route: 065
     Dates: start: 2021
  2. MESALAMINE [Suspect]
     Active Substance: MESALAMINE
     Indication: Inflammation
  3. MESALAMINE [Suspect]
     Active Substance: MESALAMINE
     Indication: Diverticulitis
     Dosage: UNK
     Route: 065
  4. MESALAMINE [Suspect]
     Active Substance: MESALAMINE
     Indication: Inflammation
  5. GLIFAGE [Concomitant]
     Active Substance: METFORMIN HYDROCHLORIDE
     Indication: Glucose tolerance impaired
     Dosage: UNK
  6. ROSUVASTATIN [Concomitant]
     Active Substance: ROSUVASTATIN
     Indication: Blood cholesterol
     Dosage: UNK

REACTIONS (9)
  - Adverse event [Unknown]
  - Faecal calprotectin abnormal [Unknown]
  - Therapy interrupted [Unknown]
  - Crying [Unknown]
  - Gastrointestinal disorder [Unknown]
  - Pain [Unknown]
  - Drug ineffective [Unknown]
  - Alopecia [Unknown]
  - Pyrexia [Unknown]
